FAERS Safety Report 18213139 (Version 1)
Quarter: 2020Q3

REPORT INFORMATION
  Report Type: Spontaneous
  Country: US (occurrence: US)
  Receive Date: 20200828
  Receipt Date: 20200828
  Transmission Date: 20201103
  Serious: Yes (Hospitalization)
  Sender: FDA-Public Use
  Company Number: None

PATIENT
  Age: 60 Year
  Sex: Male

DRUGS (17)
  1. OPSUMIT [Suspect]
     Active Substance: MACITENTAN
     Indication: PULMONARY ARTERIAL HYPERTENSION
     Route: 048
     Dates: start: 201603
  2. METOLAZONE. [Concomitant]
     Active Substance: METOLAZONE
  3. BUMETANIDE. [Concomitant]
     Active Substance: BUMETANIDE
  4. GLIPIZIDE. [Concomitant]
     Active Substance: GLIPIZIDE
  5. ALLOPURINOL. [Concomitant]
     Active Substance: ALLOPURINOL
  6. TYVASO [Concomitant]
     Active Substance: TREPROSTINIL
  7. KLOR?CON [Concomitant]
     Active Substance: POTASSIUM CHLORIDE
  8. INSPRA [Concomitant]
     Active Substance: EPLERENONE
  9. LACTULOSE. [Concomitant]
     Active Substance: LACTULOSE
  10. RIFAXIMIN. [Concomitant]
     Active Substance: RIFAXIMIN
  11. CEFPODOXIME [Concomitant]
     Active Substance: CEFPODOXIME
  12. SIMVASTATIN. [Concomitant]
     Active Substance: SIMVASTATIN
  13. OMEPRAZOLE. [Concomitant]
     Active Substance: OMEPRAZOLE
  14. FIORICET [Concomitant]
     Active Substance: ACETAMINOPHEN\BUTALBITAL\CAFFEINE
  15. SILDENAFIL. [Concomitant]
     Active Substance: SILDENAFIL
  16. COLCHICINE. [Concomitant]
     Active Substance: COLCHICINE
  17. MAGNESIUM OXIDE. [Concomitant]
     Active Substance: MAGNESIUM OXIDE

REACTIONS (4)
  - Bleeding varicose vein [None]
  - Shock haemorrhagic [None]
  - Haemoglobin decreased [None]
  - Platelet count decreased [None]

NARRATIVE: CASE EVENT DATE: 20200730
